FAERS Safety Report 7938261-4 (Version None)
Quarter: 2011Q4

REPORT INFORMATION
  Report Type: 
  Country: None (occurrence: None)
  Receive Date: 20111123
  Receipt Date: 20111114
  Transmission Date: 20120403
  Serious: Yes (Hospitalization)
  Sender: FDA-Public Use
  Company Number: US-ASTRAZENECA-2011SE69059

PATIENT
  Age: 36 Year
  Sex: Female
  Weight: 68 kg

DRUGS (1)
  1. SEROQUEL [Suspect]
     Indication: BIPOLAR DISORDER
     Route: 048

REACTIONS (7)
  - SCHIZOPHRENIA [None]
  - DRUG INEFFECTIVE [None]
  - DRUG DOSE OMISSION [None]
  - BIPOLAR DISORDER [None]
  - BIPOLAR I DISORDER [None]
  - MALAISE [None]
  - INAPPROPRIATE SCHEDULE OF DRUG ADMINISTRATION [None]
